FAERS Safety Report 5370802-6 (Version None)
Quarter: 2007Q2

REPORT INFORMATION
  Report Type: 
  Country: None (occurrence: None)
  Receive Date: 20070626
  Receipt Date: 20070622
  Transmission Date: 20071010
  Serious: Yes (Other)
  Sender: FDA-Public Use
  Company Number: B0476594A

PATIENT

DRUGS (1)
  1. AVANDAMET [Suspect]
     Indication: DRUG USE FOR UNKNOWN INDICATION
     Route: 065

REACTIONS (3)
  - DIZZINESS [None]
  - LOSS OF CONSCIOUSNESS [None]
  - TRANSIENT ISCHAEMIC ATTACK [None]
